FAERS Safety Report 14939525 (Version 1)
Quarter: 2018Q2

REPORT INFORMATION
  Report Type: Spontaneous
  Country: GB (occurrence: GB)
  Receive Date: 20180525
  Receipt Date: 20180525
  Transmission Date: 20180711
  Serious: Yes (Death)
  Sender: FDA-Public Use
  Company Number: GB-PURDUE PHARMA-GBR-2018-0056084

PATIENT
  Sex: Female

DRUGS (2)
  1. LONGTEC [Suspect]
     Active Substance: OXYCODONE HYDROCHLORIDE
     Indication: ANALGESIC THERAPY
     Dosage: 170 MG, BID
     Route: 048
  2. LYRICA [Concomitant]
     Active Substance: PREGABALIN
     Dosage: 150 MG, BID

REACTIONS (2)
  - Sedation [Unknown]
  - Death [Fatal]

NARRATIVE: CASE EVENT DATE: 2016
